FAERS Safety Report 20113933 (Version 1)
Quarter: 2021Q4

REPORT INFORMATION
  Report Type: Spontaneous
  Country: US (occurrence: US)
  Receive Date: 20211125
  Receipt Date: 20211125
  Transmission Date: 20220303
  Serious: Yes (Other)
  Sender: FDA-Public Use
  Company Number: US-NOVARTISTESTPH-NVSC2021US266259

PATIENT
  Age: 74 Year
  Sex: Male

DRUGS (4)
  1. DOCETAXEL [Suspect]
     Active Substance: DOCETAXEL
     Indication: Hormone-refractory prostate cancer
     Dosage: UNK
     Route: 065
     Dates: start: 20200723, end: 20201215
  2. CABAZITAXEL [Suspect]
     Active Substance: CABAZITAXEL
     Indication: Hormone-refractory prostate cancer
     Dosage: UNK (2 CYCLES)
     Route: 065
     Dates: start: 20210121, end: 20210202
  3. CARBOPLATIN [Suspect]
     Active Substance: CARBOPLATIN
     Indication: Hormone-refractory prostate cancer
     Dosage: UNK (5 CYCLES)
     Route: 065
     Dates: start: 20210309, end: 20210622
  4. PACLITAXEL [Suspect]
     Active Substance: PACLITAXEL
     Indication: Hormone-refractory prostate cancer
     Dosage: UNK (5 CYCLES)
     Route: 065
     Dates: start: 20210309, end: 20210622

REACTIONS (5)
  - Hormone-refractory prostate cancer [Unknown]
  - Malignant neoplasm progression [Unknown]
  - Metastases to soft tissue [Unknown]
  - Metastases to bone [Unknown]
  - Prostatic specific antigen increased [Unknown]
